FAERS Safety Report 6936424-8 (Version None)
Quarter: 2010Q3

REPORT INFORMATION
  Report Type: 
  Country: None (occurrence: None)
  Receive Date: 20100818
  Receipt Date: 20100805
  Transmission Date: 20110219
  Serious: Yes (Death, Hospitalization)
  Sender: FDA-Public Use
  Company Number: A-US2010-38014

PATIENT
  Age: 59 Year
  Sex: Male

DRUGS (4)
  1. TRACLEER [Suspect]
     Indication: PULMONARY ARTERIAL HYPERTENSION
     Dosage: ORAL
     Route: 048
     Dates: start: 20050101, end: 20100705
  2. NEXAVAR [Concomitant]
  3. TARCEVA [Concomitant]
  4. MS CONTIN [Concomitant]

REACTIONS (7)
  - CARDIAC FAILURE CONGESTIVE [None]
  - CEREBROVASCULAR ACCIDENT [None]
  - COMA [None]
  - DISEASE COMPLICATION [None]
  - ELECTROLYTE IMBALANCE [None]
  - HEPATIC NEOPLASM MALIGNANT [None]
  - RENAL FAILURE [None]
